FAERS Safety Report 6327327-0 (Version None)
Quarter: 2009Q3

REPORT INFORMATION
  Report Type: 
  Country: None (occurrence: None)
  Receive Date: 20090825
  Receipt Date: 20090812
  Transmission Date: 20100115
  Serious: Yes (Other)
  Sender: FDA-Public Use
  Company Number: CN-JNJFOC-20080901125

PATIENT
  Age: 37 Year
  Sex: Female

DRUGS (2)
  1. DAKTARIN [Suspect]
     Route: 065
  2. DAKTARIN [Suspect]
     Indication: TINEA PEDIS
     Route: 065

REACTIONS (2)
  - ABORTION SPONTANEOUS [None]
  - DRUG EXPOSURE DURING PREGNANCY [None]
